FAERS Safety Report 5107607-7 (Version None)
Quarter: 2006Q3

REPORT INFORMATION
  Report Type: 
  Country: None (occurrence: None)
  Receive Date: 20060913
  Receipt Date: 20060913
  Transmission Date: 20061208
  Serious: No
  Sender: FDA-Public Use
  Company Number: None

PATIENT
  Sex: Female
  Weight: 86.1834 kg

DRUGS (2)
  1. ORTHO CYCLEN-28 [Suspect]
     Indication: CONTRACEPTION
     Dosage: 30 MG 1 X DAILY PO
     Route: 048
     Dates: start: 20060401, end: 20060428
  2. ORTHO CYCLEN-28 [Suspect]
     Indication: MENORRHAGIA
     Dosage: 30 MG 1 X DAILY PO
     Route: 048
     Dates: start: 20060401, end: 20060428

REACTIONS (2)
  - METRORRHAGIA [None]
  - THERAPEUTIC RESPONSE UNEXPECTED WITH DRUG SUBSTITUTION [None]
